FAERS Safety Report 5397134-4 (Version None)
Quarter: 2007Q3

REPORT INFORMATION
  Report Type: 
  Country: None (occurrence: None)
  Receive Date: 20070725
  Receipt Date: 20070711
  Transmission Date: 20080115
  Serious: Yes (Other)
  Sender: FDA-Public Use
  Company Number: PT-PFIZER INC-2007035219

PATIENT
  Sex: Male

DRUGS (3)
  1. VIRACEPT [Suspect]
     Indication: HIV INFECTION
     Dosage: TEXT:10 DOSE FORM
     Route: 048
     Dates: start: 20070319, end: 20070609
  2. EPIVIR [Concomitant]
  3. VIDEX [Concomitant]

REACTIONS (7)
  - ASTHMATIC CRISIS [None]
  - NAUSEA [None]
  - OCULAR HYPERAEMIA [None]
  - PRODUCTIVE COUGH [None]
  - RASH MACULAR [None]
  - TONGUE DISCOLOURATION [None]
  - WEIGHT DECREASED [None]
